FAERS Safety Report 4990139-4 (Version None)
Quarter: 2006Q2

REPORT INFORMATION
  Report Type: 
  Country: None (occurrence: None)
  Receive Date: 20060503
  Receipt Date: 20050829
  Transmission Date: 20061013
  Serious: Yes (Hospitalization, Disabling, Other)
  Sender: FDA-Public Use
  Company Number: US-MERCK-0508USA04843

PATIENT
  Age: 37 Year
  Sex: Male
  Weight: 195 kg

DRUGS (6)
  1. VIOXX [Suspect]
     Indication: GOUT
     Route: 048
     Dates: start: 20000101, end: 20040301
  2. VIOXX [Suspect]
     Indication: ARTHRITIS
     Route: 048
     Dates: start: 20000101, end: 20040301
  3. ALLOPURINOL [Concomitant]
     Route: 065
  4. INDOCIN [Concomitant]
     Route: 065
  5. HYDRODIURIL [Concomitant]
     Route: 065
  6. PROTONIX [Concomitant]
     Route: 065

REACTIONS (4)
  - CHEST PAIN [None]
  - PALPITATIONS [None]
  - PULMONARY EMBOLISM [None]
  - THROMBOSIS [None]
